FAERS Safety Report 19103963 (Version 2)
Quarter: 2021Q4

REPORT INFORMATION
  Report Type: Spontaneous
  Country: US (occurrence: US)
  Receive Date: 20210407
  Receipt Date: 20211222
  Transmission Date: 20220304
  Serious: No
  Sender: FDA-Public Use
  Company Number: US-PFIZER INC-2021302319

PATIENT
  Age: 73 Year
  Sex: Female

DRUGS (1)
  1. XELJANZ XR [Suspect]
     Active Substance: TOFACITINIB CITRATE
     Dosage: UNK

REACTIONS (6)
  - Musculoskeletal stiffness [Unknown]
  - Muscle spasms [Unknown]
  - Joint swelling [Unknown]
  - Back pain [Unknown]
  - Peripheral swelling [Unknown]
  - Arthralgia [Unknown]
